FAERS Safety Report 8415201-5 (Version None)
Quarter: 2012Q2

REPORT INFORMATION
  Report Type: 
  Country: None (occurrence: None)
  Receive Date: 20120606
  Receipt Date: 20120531
  Transmission Date: 20120825
  Serious: No
  Sender: FDA-Public Use
  Company Number: US-PFIZER INC-2012131346

PATIENT
  Sex: Female

DRUGS (4)
  1. VENTOLIN HFA 108 [Concomitant]
     Dosage: UNK
  2. EFFEXOR XR [Suspect]
     Dosage: 75 MG, 1X/DAY
  3. SPIRIVA [Concomitant]
     Dosage: UNK
  4. ALLEGRA-D 12 HOUR [Concomitant]
     Dosage: UNK

REACTIONS (1)
  - STRESS AT WORK [None]
